FAERS Safety Report 7332522-8 (Version None)
Quarter: 2011Q1

REPORT INFORMATION
  Report Type: 
  Country: None (occurrence: None)
  Receive Date: 20110304
  Receipt Date: 20110222
  Transmission Date: 20110831
  Serious: Yes (Hospitalization)
  Sender: FDA-Public Use
  Company Number: JP-JNJFOC-20110206730

PATIENT
  Sex: Female
  Weight: 44 kg

DRUGS (18)
  1. GOLIMUMAB [Suspect]
     Indication: RHEUMATOID ARTHRITIS
     Route: 058
  2. METHOTREXATE [Concomitant]
     Indication: RHEUMATOID ARTHRITIS
     Route: 048
  3. MERISLON [Concomitant]
     Indication: ILL-DEFINED DISORDER
     Route: 048
  4. CELECOX [Concomitant]
     Indication: RHEUMATOID ARTHRITIS
     Route: 048
  5. METHYCOBAL [Concomitant]
     Indication: VERTIGO
     Route: 048
  6. CEREKINON [Concomitant]
     Indication: ENTEROCOLITIS
     Route: 048
  7. BIOFERMIN R [Concomitant]
     Indication: ENTEROCOLITIS
     Route: 048
  8. KETOPROFEN [Concomitant]
     Indication: SPONDYLOLISTHESIS
     Route: 062
  9. FELBINAC [Concomitant]
     Indication: PERIARTHRITIS
  10. FLUOROMETHOLONE [Concomitant]
  11. GOLIMUMAB [Suspect]
     Route: 058
  12. GOLIMUMAB [Suspect]
     Route: 058
  13. SEDIEL [Concomitant]
     Indication: ILL-DEFINED DISORDER
     Route: 048
  14. GASCON [Concomitant]
     Indication: ENTEROCOLITIS
  15. FOLIAMIN [Concomitant]
     Indication: PROPHYLAXIS
     Route: 048
  16. APHTASOLON [Concomitant]
     Indication: STOMATITIS
     Route: 049
  17. TAKEPRON [Concomitant]
     Indication: GASTRITIS PROPHYLAXIS
     Route: 048
  18. KETOTIFEN FUMARATE [Concomitant]
     Indication: CONJUNCTIVITIS ALLERGIC
     Route: 031

REACTIONS (1)
  - ABSCESS JAW [None]
